FAERS Safety Report 12522270 (Version 3)
Quarter: 2016Q3

REPORT INFORMATION
  Report Type: Spontaneous
  Country: PL (occurrence: PL)
  Receive Date: 20160701
  Receipt Date: 20160715
  Transmission Date: 20161109
  Serious: Yes (Hospitalization, Disabling, Other)
  Sender: FDA-Public Use
  Company Number: PL-009507513-1212POL011271

PATIENT
  Age: 21 Year
  Sex: Male

DRUGS (8)
  1. DIFFERIN [Concomitant]
     Active Substance: ADAPALENE
     Indication: SEBORRHOEA
  2. PROPECIA [Suspect]
     Active Substance: FINASTERIDE
     Indication: ANDROGENETIC ALOPECIA
     Dosage: 1 MG, QD
     Route: 048
     Dates: start: 20071114, end: 20121202
  3. DUAC [Concomitant]
     Active Substance: BENZOYL PEROXIDE\CLINDAMYCIN PHOSPHATE
     Indication: ACNE
     Dosage: UNK, UNKNOWN
     Route: 065
  4. DUAC [Concomitant]
     Active Substance: BENZOYL PEROXIDE\CLINDAMYCIN PHOSPHATE
     Indication: SEBORRHOEA
  5. LOCOID [Concomitant]
     Active Substance: HYDROCORTISONE BUTYRATE
     Indication: ACNE
     Dosage: UNK, UNKNOWN
     Route: 065
  6. LOCOID [Concomitant]
     Active Substance: HYDROCORTISONE BUTYRATE
     Indication: SEBORRHOEA
  7. DIFFERIN [Concomitant]
     Active Substance: ADAPALENE
     Indication: ACNE
     Dosage: UNK, UNKNOWN
     Route: 065
  8. DERMATOLOGIC (UNSPECIFIED) [Concomitant]
     Active Substance: UNSPECIFIED INGREDIENT
     Indication: ACNE
     Dosage: UNK, UNKNOWN
     Route: 065

REACTIONS (54)
  - Semen analysis abnormal [Unknown]
  - Papule [Unknown]
  - Post inflammatory pigmentation change [Unknown]
  - Headache [Unknown]
  - Tinnitus [Unknown]
  - Restlessness [Unknown]
  - Aggression [Unknown]
  - Hyperhidrosis [Unknown]
  - Stress [Unknown]
  - Goitre [Unknown]
  - Headache [Unknown]
  - Abdominal pain lower [Unknown]
  - Discomfort [Unknown]
  - Burning sensation [Unknown]
  - Upper respiratory tract inflammation [Unknown]
  - Lower respiratory tract infection [Unknown]
  - Emotional disorder [Unknown]
  - Headache [Unknown]
  - Dysuria [Unknown]
  - Prostatitis [Unknown]
  - Insomnia [Unknown]
  - Upper respiratory tract inflammation [Unknown]
  - Overweight [Unknown]
  - Breast tenderness [Unknown]
  - Skin lesion [Unknown]
  - Upper respiratory tract inflammation [Unknown]
  - Lower respiratory tract infection [Unknown]
  - Psoriasis [Unknown]
  - Genital hypoaesthesia [Unknown]
  - Disturbance in attention [Unknown]
  - Anal inflammation [Unknown]
  - Neuralgia [Unknown]
  - Depression [Unknown]
  - Upper respiratory tract inflammation [Unknown]
  - Upper respiratory tract inflammation [Unknown]
  - Affective disorder [Unknown]
  - Organic erectile dysfunction [Not Recovered/Not Resolved]
  - Organic erectile dysfunction [Not Recovered/Not Resolved]
  - Loss of libido [Not Recovered/Not Resolved]
  - Hypoacusis [Unknown]
  - Parapsoriasis [Unknown]
  - Feeling abnormal [Not Recovered/Not Resolved]
  - Mental disorder [Not Recovered/Not Resolved]
  - Pineal gland cyst [Unknown]
  - Painful erection [Unknown]
  - Dermal cyst [Unknown]
  - Pollakiuria [Unknown]
  - Insomnia [Unknown]
  - Respiratory tract infection [Unknown]
  - Semen analysis abnormal [Unknown]
  - Hyperthyroidism [Unknown]
  - Memory impairment [Unknown]
  - Upper respiratory tract inflammation [Unknown]
  - Psychomotor hyperactivity [Unknown]

NARRATIVE: CASE EVENT DATE: 2008
